FAERS Safety Report 6907773-4 (Version None)
Quarter: 2010Q3

REPORT INFORMATION
  Report Type: 
  Country: None (occurrence: None)
  Receive Date: 20100805
  Receipt Date: 20100722
  Transmission Date: 20110219
  Serious: Yes (Other)
  Sender: FDA-Public Use
  Company Number: BE-RANBAXY-2010RR-36637

PATIENT
  Age: 39 Year
  Sex: Male

DRUGS (3)
  1. TETRAZEPAM [Suspect]
  2. ZOLPIDEM [Suspect]
  3. LORAZEPAM [Suspect]

REACTIONS (1)
  - DERMATITIS CONTACT [None]
